FAERS Safety Report 9458489 (Version 1)
Quarter: 2013Q3

REPORT INFORMATION
  Report Type: Spontaneous
  Country: US (occurrence: US)
  Receive Date: 20130814
  Receipt Date: 20130814
  Transmission Date: 20140515
  Serious: Yes (Other)
  Sender: FDA-Public Use
  Company Number: US-SANOFI-AVENTIS-2012SA058460

PATIENT
  Sex: Male

DRUGS (2)
  1. ZOLPIDEM TARTRATE [Suspect]
     Indication: SLEEP DISORDER
     Dosage: HE HAD CUT THE ZOLPIDEM 10MG TABLETS IN HALF TO TRY TO WEAN OFF OF THE ZOLPIDEM.
     Route: 048
     Dates: start: 201204
  2. ALPRAZOLAM [Concomitant]
     Indication: SLEEP DISORDER
     Dates: start: 2012

REACTIONS (3)
  - Drug dependence [Unknown]
  - Memory impairment [Not Recovered/Not Resolved]
  - Wrong technique in drug usage process [Unknown]
